FAERS Safety Report 4693988-5 (Version None)
Quarter: 2005Q2

REPORT INFORMATION
  Report Type: 
  Country: None (occurrence: None)
  Receive Date: 20050616
  Receipt Date: 20050603
  Transmission Date: 20051028
  Serious: Yes (Other)
  Sender: FDA-Public Use
  Company Number: 2005086307

PATIENT
  Age: 70 Year
  Sex: Female
  Weight: 90.7194 kg

DRUGS (6)
  1. BEXTRA [Suspect]
     Indication: PAIN
     Dosage: 10 MG (10 MG, 1 IN 1 D), ORAL
     Route: 048
  2. PROTONIX [Concomitant]
  3. ANTIHYPERTENSIVES (ANTIHYPERTENSIVES) [Concomitant]
  4. ZOCOR [Concomitant]
  5. INSULIN [Concomitant]
  6. AVANDAMET (METFORMIN HYDROCHLORIDE, ROSIGLITAZONE) [Concomitant]

REACTIONS (7)
  - CONDITION AGGRAVATED [None]
  - DIFFICULTY IN WALKING [None]
  - FEELING ABNORMAL [None]
  - LIMB OPERATION [None]
  - PAIN [None]
  - TRIGGER FINGER [None]
  - WRIST SURGERY [None]
